FAERS Safety Report 9284226 (Version 2)
Quarter: 2013Q2

REPORT INFORMATION
  Report Type: Spontaneous
  Country: FR (occurrence: FR)
  Receive Date: 20130510
  Receipt Date: 20130530
  Transmission Date: 20140414
  Serious: Yes (Other)
  Sender: FDA-Public Use
  Company Number: FR-ASTRAZENECA-2013SE30971

PATIENT
  Age: 714 Month
  Sex: Male

DRUGS (6)
  1. INEXIUM [Suspect]
     Indication: GASTRIC ULCER
     Route: 048
     Dates: start: 2010, end: 20130423
  2. FUROSEMIDE [Concomitant]
     Dosage: LONG LASTING TREATMENT
     Route: 048
  3. COUMADINE [Concomitant]
     Indication: INTRACARDIAC THROMBUS
     Dosage: LONG LASTING TREATMENT
     Route: 048
  4. SALAZOPYRINE [Concomitant]
     Indication: CROHN^S DISEASE
     Dosage: LONG LASTING TREATMENT
     Route: 048
  5. IMUREL [Concomitant]
     Indication: CROHN^S DISEASE
     Dosage: LONG LASTING TREATMENT
     Route: 048
  6. HYDROCORTISONE [Concomitant]
     Indication: CROHN^S DISEASE
     Dosage: LONG LASTING TREATMENT
     Route: 048

REACTIONS (2)
  - Hypocalcaemia [Unknown]
  - Hypomagnesaemia [Recovering/Resolving]
